FAERS Safety Report 20161442 (Version 1)
Quarter: 2021Q4

REPORT INFORMATION
  Report Type: Spontaneous
  Country: US (occurrence: None)
  Receive Date: 20211207
  Receipt Date: 20211207
  Transmission Date: 20220303
  Serious: Yes (Hospitalization, Other)
  Sender: FDA-Public Use
  Company Number: None

PATIENT
  Age: 69 Year
  Sex: Male
  Weight: 99 kg

DRUGS (5)
  1. METOPROLOL SUCCINATE [Suspect]
     Active Substance: METOPROLOL SUCCINATE
     Indication: Cardiac disorder
     Dosage: OTHER QUANTITY : 1 TABLET(S);?FREQUENCY : DAILY;?
     Route: 048
     Dates: start: 20210210, end: 20211207
  2. ASPIRIN [Concomitant]
     Active Substance: ASPIRIN
  3. MEN^S ONE-A-DAY 50+ 1/DAY [Concomitant]
  4. VITAMIN D3 [Concomitant]
     Active Substance: CHOLECALCIFEROL
  5. ZINC GLUCONATE [Concomitant]
     Active Substance: ZINC GLUCONATE

REACTIONS (6)
  - Influenza like illness [None]
  - Hypopnoea [None]
  - Respiratory rate increased [None]
  - Dyspnoea [None]
  - Asthenia [None]
  - Pulmonary embolism [None]

NARRATIVE: CASE EVENT DATE: 20210305
